FAERS Safety Report 4287733-5 (Version None)
Quarter: 2004Q1

REPORT INFORMATION
  Report Type: 
  Country: None (occurrence: None)
  Receive Date: 20040209
  Receipt Date: 20030911
  Transmission Date: 20041129
  Serious: No
  Sender: FDA-Public Use
  Company Number: US-GLAXOSMITHKLINE-A0425499A

PATIENT
  Age: 76 Year
  Sex: Female

DRUGS (12)
  1. PAXIL [Suspect]
     Dosage: 25MG PER DAY
     Route: 048
  2. METOPROLOL [Concomitant]
  3. COZAAR [Concomitant]
  4. NORVASC [Concomitant]
  5. ZOCOR [Concomitant]
  6. CATAPRES [Concomitant]
  7. CELEBREX [Concomitant]
  8. ASPIRIN [Concomitant]
  9. COLACE [Concomitant]
  10. ISOSORBIDE [Concomitant]
  11. OXYCONTIN [Concomitant]
  12. UNKNOWN MEDICATION [Concomitant]

REACTIONS (1)
  - STOOL ANALYSIS ABNORMAL [None]
